FAERS Safety Report 8386706-0 (Version None)
Quarter: 2012Q2

REPORT INFORMATION
  Report Type: 
  Country: None (occurrence: None)
  Receive Date: 20120525
  Receipt Date: 20120517
  Transmission Date: 20120825
  Serious: Yes (Other)
  Sender: FDA-Public Use
  Company Number: IT-GE HEALTHCARE MEDICAL DIAGNOSTICS-VISP-NO-1205S-0225

PATIENT
  Sex: Male

DRUGS (5)
  1. LANSOPRAZOLE [Concomitant]
  2. VISIPAQUE [Suspect]
     Indication: PRODUCT USED FOR UNKNOWN INDICATION
     Route: 042
     Dates: start: 20120509, end: 20120509
  3. PREDNISONE (DELTACORTENE) [Concomitant]
  4. TICLOPIDINE HCL [Concomitant]
  5. CHLORPHENIRAMINE MALEATE (TRIMETON) [Concomitant]

REACTIONS (3)
  - OEDEMA PERIPHERAL [None]
  - PAIN IN EXTREMITY [None]
  - HAEMATOMA [None]
